FAERS Safety Report 8281458-7 (Version None)
Quarter: 2012Q1

REPORT INFORMATION
  Report Type: 
  Country: None (occurrence: None)
  Receive Date: 20120316
  Receipt Date: 20101018
  Transmission Date: 20120608
  Serious: Yes (Other)
  Sender: FDA-Public Use
  Company Number: PHHY2010US70190

PATIENT
  Age: 63 Year
  Sex: Female

DRUGS (14)
  1. COREG [Concomitant]
  2. NEURONTIN [Concomitant]
  3. RANEXA [Concomitant]
  4. LEVOTHYROXINE SODIUM [Concomitant]
  5. HUMALOG [Concomitant]
  6. PROCARDIA [Concomitant]
  7. TEKTURNA [Suspect]
     Indication: PROTEIN TOTAL
     Dosage: 150 MG , ORAL, 300 MG,QD, ORAL
     Route: 048
     Dates: start: 20100927, end: 20101014
  8. TEKTURNA [Suspect]
     Indication: HYPERTENSION
     Dosage: 150 MG , ORAL, 300 MG,QD, ORAL
     Route: 048
     Dates: start: 20100927, end: 20101014
  9. TEKTURNA [Suspect]
     Indication: DIABETES MELLITUS
     Dosage: 150 MG , ORAL, 300 MG,QD, ORAL
     Route: 048
     Dates: start: 20100927, end: 20101014
  10. DIOVAN [Concomitant]
  11. PLAVIX [Concomitant]
  12. ASPIRIN [Concomitant]
  13. LANTUS [Concomitant]
  14. CRESTOR [Concomitant]

REACTIONS (6)
  - BLOOD GLUCOSE INCREASED [None]
  - DIZZINESS [None]
  - HYPERTENSION [None]
  - PROTEINURIA [None]
  - OEDEMA PERIPHERAL [None]
  - HYPERHIDROSIS [None]
